FAERS Safety Report 4724633-8 (Version None)
Quarter: 2005Q3

REPORT INFORMATION
  Report Type: 
  Country: None (occurrence: None)
  Receive Date: 20050721
  Receipt Date: 20050613
  Transmission Date: 20060218
  Serious: No
  Sender: FDA-Public Use
  Company Number: 2005SP001378

PATIENT
  Age: 62 Year
  Sex: Male
  Weight: 97.5234 kg

DRUGS (3)
  1. LUNESTA [Suspect]
     Dosage: ORAL; SEE IMAGE
     Route: 048
     Dates: start: 20050101, end: 20050101
  2. LUNESTA [Suspect]
     Dosage: ORAL; SEE IMAGE
     Route: 048
     Dates: start: 20050401, end: 20050101
  3. LUNESTA [Suspect]
     Dosage: ORAL; SEE IMAGE
     Route: 048
     Dates: start: 20050101

REACTIONS (1)
  - DIARRHOEA [None]
